FAERS Safety Report 5252935-8 (Version None)
Quarter: 2007Q1

REPORT INFORMATION
  Report Type: 
  Country: None (occurrence: None)
  Receive Date: 20070301
  Receipt Date: 20070220
  Transmission Date: 20070707
  Serious: Yes (Death, Other)
  Sender: FDA-Public Use
  Company Number: CA-AVENTIS-200711487GDDC

PATIENT
  Sex: Female

DRUGS (7)
  1. LEVAQUIN [Suspect]
     Dosage: DOSE: 500 MG
     Route: 048
  2. FLAGYL [Suspect]
  3. ASPIRIN [Concomitant]
  4. FERROUS GLUCONATE [Concomitant]
  5. METFORMIN HCL [Concomitant]
  6. PREVACID [Concomitant]
  7. TAMIFLU [Concomitant]

REACTIONS (1)
  - HEPATITIS FULMINANT [None]
